FAERS Safety Report 23400276 (Version 3)
Quarter: 2024Q1

REPORT INFORMATION
  Report Type: Spontaneous
  Country: CA (occurrence: CA)
  Receive Date: 20240114
  Receipt Date: 20240223
  Transmission Date: 20240409
  Serious: Yes (Hospitalization, Other)
  Sender: FDA-Public Use
  Company Number: CA-CELLTRION INC.-2024CA000713

PATIENT

DRUGS (6)
  1. INFLECTRA [Suspect]
     Active Substance: INFLIXIMAB-DYYB
     Indication: Colitis ulcerative
     Dosage: 5 MG/KG INDUCTION DOSES AT WEEK 0, 2 AND 6, THEN EVERY 8 WEEKS- HOSPITAL START
     Route: 042
     Dates: start: 20220629, end: 20240105
  2. INFLECTRA [Suspect]
     Active Substance: INFLIXIMAB-DYYB
     Dosage: 5 MG/KG, 0, 2 AND 6, THEN EVERY 8 WEEKS- HOSPITAL START
     Route: 042
     Dates: start: 2022
  3. INFLECTRA [Suspect]
     Active Substance: INFLIXIMAB-DYYB
     Dosage: 5 MG/KG, 0, 2 AND 6, THEN EVERY 8 WEEKS- HOSPITAL START
     Route: 042
     Dates: start: 20231106
  4. INFLECTRA [Suspect]
     Active Substance: INFLIXIMAB-DYYB
     Dosage: 5 MG/KG (325MG) AFTER 8 WEEKS- HOSPITAL START
     Route: 042
     Dates: start: 20240105
  5. INFLECTRA [Suspect]
     Active Substance: INFLIXIMAB-DYYB
     Dosage: 10 MG/KG FREQUENCY UNKNOWN (600MG (10MG/KG), 5 WEEKS AND 5 DAYS (STAT))
     Route: 042
     Dates: start: 20240214
  6. INFLECTRA [Suspect]
     Active Substance: INFLIXIMAB-DYYB
     Dosage: 10 MG/KG FREQUENCY UNKNOWN (600MG (10MG/KG), 5 WEEKS AND 5 DAYS (STAT))
     Route: 042
     Dates: start: 20240214

REACTIONS (6)
  - Condition aggravated [Recovering/Resolving]
  - Fall [Recovered/Resolved]
  - Influenza A virus test positive [Recovered/Resolved]
  - Weight decreased [Not Recovered/Not Resolved]
  - Off label use [Unknown]
  - Inappropriate schedule of product administration [Unknown]

NARRATIVE: CASE EVENT DATE: 20240105
